FAERS Safety Report 8596245-X (Version None)
Quarter: 2012Q3

REPORT INFORMATION
  Report Type: 
  Country: None (occurrence: None)
  Receive Date: 20120815
  Receipt Date: 20120810
  Transmission Date: 20120928
  Serious: Yes (Other)
  Sender: FDA-Public Use
  Company Number: PHEH2012US015687

PATIENT
  Sex: Male

DRUGS (2)
  1. PREVACID [Suspect]
  2. GLEEVEC [Suspect]

REACTIONS (4)
  - DRUG RESISTANCE [None]
  - WHITE BLOOD CELL COUNT INCREASED [None]
  - OEDEMA [None]
  - PLATELET COUNT INCREASED [None]
